FAERS Safety Report 7961058-6 (Version None)
Quarter: 2011Q4

REPORT INFORMATION
  Report Type: 
  Country: None (occurrence: None)
  Receive Date: 20111202
  Receipt Date: 20111116
  Transmission Date: 20120403
  Serious: Yes (Life-Threatening, Hospitalization)
  Sender: FDA-Public Use
  Company Number: 1000025366

PATIENT
  Age: 70 Year
  Sex: Male
  Weight: 75 kg

DRUGS (4)
  1. TIOPRONIN [Concomitant]
  2. ALBUTEROL SULFATE AUTOHALER [Concomitant]
  3. TRADITIONAL CHINESE MEDICINE [Concomitant]
  4. ROFLUMILAST (ROFLUMILAST) (TABLETS) [Suspect]
     Indication: CHRONIC OBSTRUCTIVE PULMONARY DISEASE
     Dosage: 1 DOSAGE FORMS (1 DOSAGE FORMS, 1 IN 1 D), ORAL
     Route: 048
     Dates: end: 20111027

REACTIONS (3)
  - LIVER INJURY [None]
  - HEPATITIS B [None]
  - HEPATOMEGALY [None]
